FAERS Safety Report 6531204-X (Version None)
Quarter: 2010Q1

REPORT INFORMATION
  Report Type: 
  Country: None (occurrence: None)
  Receive Date: 20100108
  Receipt Date: 20091229
  Transmission Date: 20100710
  Serious: Yes (Other)
  Sender: FDA-Public Use
  Company Number: PHHY2009BR59366

PATIENT
  Age: 84 Year
  Sex: Female

DRUGS (1)
  1. DIOVAN HCT [Suspect]
     Indication: PERIPHERAL VASCULAR DISORDER

REACTIONS (5)
  - ARTHRITIS [None]
  - BLOOD PRESSURE DECREASED [None]
  - GAIT DISTURBANCE [None]
  - OSTEOARTHRITIS [None]
  - SOMNOLENCE [None]
